FAERS Safety Report 23367206 (Version 4)
Quarter: 2025Q2

REPORT INFORMATION
  Report Type: Spontaneous
  Country: US (occurrence: US)
  Receive Date: 20240104
  Receipt Date: 20250423
  Transmission Date: 20250716
  Serious: Yes (Other)
  Sender: PFIZER
  Company Number: US-PFIZER INC-202300456172

PATIENT
  Age: 54 Year
  Sex: Female
  Weight: 60.771 kg

DRUGS (3)
  1. XELJANZ [Suspect]
     Active Substance: TOFACITINIB CITRATE
     Indication: Rheumatoid arthritis
     Dosage: 5 MG, 2X/DAY (TAKE 1 TABLET IN THE MORNING AND 1 TABLET BEFORE BEDTIME)
     Route: 048
     Dates: start: 2012
  2. XELJANZ [Suspect]
     Active Substance: TOFACITINIB CITRATE
  3. RESTASIS [Concomitant]
     Active Substance: CYCLOSPORINE
     Dosage: 1 DROP, 1X/DAY (ADMINISTER INTO BOTH EYES 1 TIME EACH DAY)

REACTIONS (5)
  - Knee arthroplasty [Not Recovered/Not Resolved]
  - Back disorder [Unknown]
  - Arthralgia [Unknown]
  - Pain [Unknown]
  - Fall [Unknown]

NARRATIVE: CASE EVENT DATE: 20120401
